FAERS Safety Report 17807818 (Version 1)
Quarter: 2020Q2

REPORT INFORMATION
  Report Type: Spontaneous
  Country: CZ (occurrence: CZ)
  Receive Date: 20200520
  Receipt Date: 20200520
  Transmission Date: 20200714
  Serious: Yes (Other)
  Sender: FDA-Public Use
  Company Number: CZ-TEVA-2020-CZ-1238298

PATIENT
  Age: 40 Year
  Sex: Female

DRUGS (2)
  1. TRAMADOL. [Suspect]
     Active Substance: TRAMADOL
     Indication: EPILEPSY
  2. TRAMADOL. [Suspect]
     Active Substance: TRAMADOL
     Indication: BACK PAIN
     Dosage: INCREASED THE DAILY DOSE UP TO 40 PRESSES OF TRAMADOL 4 TIMES A DAY IN A DISPENSER (= 2000 MG / DAY,
     Route: 048

REACTIONS (4)
  - Live birth [Unknown]
  - Drug dependence [Recovered/Resolved]
  - Maternal exposure during pregnancy [Unknown]
  - Drug abuse [Unknown]
